FAERS Safety Report 20877905 (Version 1)
Quarter: 2022Q2

REPORT INFORMATION
  Report Type: Report from Study
  Country: US (occurrence: None)
  Receive Date: 20220526
  Receipt Date: 20220526
  Transmission Date: 20220721
  Serious: Yes (Hospitalization)
  Sender: FDA-Public Use
  Company Number: US-Eisai Medical Research-EC-2022-115419

PATIENT
  Age: 65 Year
  Sex: Female

DRUGS (6)
  1. LENVIMA [Suspect]
     Active Substance: LENVATINIB
     Indication: Endometrial cancer
     Route: 048
     Dates: start: 20220512, end: 20220517
  2. LATANOPROST [Concomitant]
     Active Substance: LATANOPROST
  3. MEGESTROL ACETATE [Concomitant]
     Active Substance: MEGESTROL ACETATE
  4. SENOKOT [Concomitant]
     Active Substance: SENNOSIDES
  5. TAMOXIFEN [Concomitant]
     Active Substance: TAMOXIFEN
  6. ZOFRAN [Concomitant]
     Active Substance: ONDANSETRON HYDROCHLORIDE

REACTIONS (1)
  - Thrombosis [Not Recovered/Not Resolved]

NARRATIVE: CASE EVENT DATE: 20220514
